FAERS Safety Report 6718635-X (Version None)
Quarter: 2010Q2

REPORT INFORMATION
  Report Type: 
  Country: None (occurrence: None)
  Receive Date: 20100505
  Receipt Date: 20100426
  Transmission Date: 20101027
  Serious: Yes (Hospitalization)
  Sender: FDA-Public Use
  Company Number: 2010US001381

PATIENT
  Age: 16 Year
  Sex: Male
  Weight: 48 kg

DRUGS (2)
  1. ALEFACEPT (ALEFACEPT) INJECTION [Suspect]
     Indication: PSORIASIS
     Dosage: 0.15 MG/KG, WEEKLY, INTRAMUSCULAR
     Route: 030
     Dates: start: 20100412, end: 20100419
  2. HYPNOTICS AND SEDATIVES [Concomitant]

REACTIONS (1)
  - ACUTE PSYCHOSIS [None]
